FAERS Safety Report 22376641 (Version 1)
Quarter: 2023Q2

REPORT INFORMATION
  Report Type: Spontaneous
  Country: US (occurrence: None)
  Receive Date: 20230528
  Receipt Date: 20230528
  Transmission Date: 20230722
  Serious: No
  Sender: FDA-Public Use
  Company Number: 2023A120870

PATIENT

DRUGS (1)
  1. SAPHNELO [Suspect]
     Active Substance: ANIFROLUMAB-FNIA
     Route: 042

REACTIONS (4)
  - Herpes zoster [Unknown]
  - Nausea [Unknown]
  - Pain [Unknown]
  - Alopecia [Unknown]
